FAERS Safety Report 12680566 (Version 2)
Quarter: 2016Q3

REPORT INFORMATION
  Report Type: Spontaneous
  Country: US (occurrence: US)
  Receive Date: 20160824
  Receipt Date: 20160902
  Transmission Date: 20161109
  Serious: Yes (Hospitalization, Other)
  Sender: FDA-Public Use
  Company Number: US-BELCHER PHARMACEUTICALS, LLC-2016VTS00045

PATIENT
  Age: 13 Year
  Sex: Male
  Weight: 61.68 kg

DRUGS (2)
  1. ZOLOFT [Concomitant]
     Active Substance: SERTRALINE HYDROCHLORIDE
     Dosage: UNK
     Dates: start: 2014
  2. CEPHALEXIN. [Suspect]
     Active Substance: CEPHALEXIN
     Indication: MASS
     Dosage: 500 MG, 2X/DAY
     Route: 048
     Dates: start: 201603, end: 201603

REACTIONS (7)
  - Abdominal pain upper [Recovering/Resolving]
  - Dyspepsia [Recovering/Resolving]
  - Oesophagitis [Recovering/Resolving]
  - Chest pain [Recovering/Resolving]
  - Weight decreased [Recovering/Resolving]
  - Hypersensitivity [Recovering/Resolving]
  - Costochondritis [Recovering/Resolving]

NARRATIVE: CASE EVENT DATE: 2016
